FAERS Safety Report 5145071-2 (Version None)
Quarter: 2006Q4

REPORT INFORMATION
  Report Type: 
  Country: None (occurrence: None)
  Receive Date: 20060914
  Receipt Date: 20060711
  Transmission Date: 20070319
  Serious: Yes (Other)
  Sender: FDA-Public Use
  Company Number: PHEH2006US08901

PATIENT
  Sex: Female

DRUGS (1)
  1. DIOVAN [Suspect]
     Indication: HYPERTENSION
     Dosage: ^120^ MG, QD, ORAL
     Route: 048
     Dates: start: 20060710

REACTIONS (5)
  - BLOOD PRESSURE INCREASED [None]
  - FLUSHING [None]
  - HYPERHIDROSIS [None]
  - PHARYNGEAL OEDEMA [None]
  - URTICARIA [None]
